FAERS Safety Report 9554186 (Version 1)
Quarter: 2013Q3

REPORT INFORMATION
  Report Type: Spontaneous
  Country: US (occurrence: None)
  Receive Date: 20130802
  Receipt Date: 20130802
  Transmission Date: 20140515
  Serious: Yes (Life-Threatening, Hospitalization)
  Sender: FDA-Public Use
  Company Number: 1302USA007569

PATIENT
  Age: 22 Year
  Sex: Female

DRUGS (1)
  1. INTRONA [Suspect]
     Dosage: INTRON A INJECTION S 25, INTRAVENOUS?
     Route: 042

REACTIONS (1)
  - Swollen tongue [None]
